FAERS Safety Report 8505344-X (Version None)
Quarter: 2012Q3

REPORT INFORMATION
  Report Type: 
  Country: None (occurrence: None)
  Receive Date: 20120712
  Receipt Date: 20120704
  Transmission Date: 20120928
  Serious: Yes (Other)
  Sender: FDA-Public Use
  Company Number: CA-ASTRAZENECA-2012SE45213

PATIENT
  Age: 28 Year
  Sex: Female

DRUGS (7)
  1. SYMBICORT [Suspect]
     Dosage: 200 MCG TWO TIMES A WEEK
     Route: 055
     Dates: start: 20090101
  2. SYMBICORT [Suspect]
     Dosage: 200 MCG TWO TIMES A WEEK
     Route: 055
     Dates: start: 20090101
  3. PGX [Concomitant]
     Route: 048
  4. SYMBICORT [Suspect]
     Indication: DYSPNOEA
     Dosage: 200 MCG AS REQUIRED
     Route: 055
     Dates: start: 20090101
  5. SYMBICORT [Suspect]
     Indication: MULTIPLE ALLERGIES
     Dosage: 200 MCG AS REQUIRED
     Route: 055
     Dates: start: 20090101
  6. YASMIN [Concomitant]
     Dosage: DAILY
     Route: 048
  7. INSULIN [Concomitant]
     Route: 042

REACTIONS (5)
  - DIABETES MELLITUS INADEQUATE CONTROL [None]
  - SOMNOLENCE [None]
  - NAUSEA [None]
  - ABDOMINAL PAIN UPPER [None]
  - BLOOD GLUCOSE INCREASED [None]
